FAERS Safety Report 14214893 (Version 1)
Quarter: 2017Q4

REPORT INFORMATION
  Report Type: Report from Study
  Country: US (occurrence: US)
  Receive Date: 20171122
  Receipt Date: 20171122
  Transmission Date: 20180321
  Serious: Yes (Hospitalization, Other)
  Sender: FDA-Public Use
  Company Number: US-GILEAD-2017-0305893

PATIENT
  Age: 52 Year
  Sex: Male
  Weight: 72.5 kg

DRUGS (14)
  1. RITONAVIR. [Concomitant]
     Active Substance: RITONAVIR
  2. NYSTATIN AND TRIAMCINOLONE [Concomitant]
     Active Substance: NYSTATIN\TRIAMCINOLONE ACETONIDE
  3. ETHAMBUTOL [Concomitant]
     Active Substance: ETHAMBUTOL HYDROCHLORIDE
  4. DESONIDE. [Concomitant]
     Active Substance: DESONIDE
  5. VALACYCLOVIR                       /01269701/ [Concomitant]
  6. ATOVAQUONE. [Concomitant]
     Active Substance: ATOVAQUONE
  7. PYRIDOXINE [Concomitant]
     Active Substance: PYRIDOXINE
  8. EMTRICITABINE/TENOFOVIR DISOPROXIL FUMARATE [Suspect]
     Active Substance: EMTRICITABINE\TENOFOVIR DISOPROXIL FUMARATE
     Indication: HIV INFECTION
     Dosage: 200-300MG
     Route: 048
     Dates: start: 20130610
  9. RIFABUTIN. [Concomitant]
     Active Substance: RIFABUTIN
  10. GABAPENTIN. [Concomitant]
     Active Substance: GABAPENTIN
  11. EMTRICITABINE/TENOFOVIR DISOPROXIL FUMARATE [Suspect]
     Active Substance: EMTRICITABINE\TENOFOVIR DISOPROXIL FUMARATE
     Indication: ACQUIRED IMMUNODEFICIENCY SYNDROME
  12. AZITHROMYCIN ANHYDROUS. [Concomitant]
     Active Substance: AZITHROMYCIN ANHYDROUS
  13. DARUNAVIR [Concomitant]
     Active Substance: DARUNAVIR
  14. ISONIAZID. [Concomitant]
     Active Substance: ISONIAZID

REACTIONS (1)
  - Meningitis [Recovered/Resolved]

NARRATIVE: CASE EVENT DATE: 20130907
